FAERS Safety Report 24148655 (Version 2)
Quarter: 2024Q3

REPORT INFORMATION
  Report Type: Report from Study
  Country: DE (occurrence: DE)
  Receive Date: 20240729
  Receipt Date: 20240904
  Transmission Date: 20241017
  Serious: Yes (Other)
  Sender: ABBVIE
  Company Number: DE-ABBVIE-5849155

PATIENT
  Sex: Male
  Weight: 73 kg

DRUGS (3)
  1. HUMIRA [Suspect]
     Active Substance: ADALIMUMAB
     Indication: Ankylosing spondylitis
     Route: 058
     Dates: start: 20220922, end: 202406
  2. NOVAMINSULFON CT [Concomitant]
     Indication: Pain
     Route: 048
     Dates: start: 2021, end: 20240701
  3. IBUPROFEN [Concomitant]
     Active Substance: IBUPROFEN
     Indication: Pain
     Dosage: FORM STRENGTH: 600 MILIGRAM
     Route: 048
     Dates: start: 2021, end: 20240701

REACTIONS (3)
  - Paranasal sinus neoplasm [Not Recovered/Not Resolved]
  - Pharyngeal cyst [Unknown]
  - Branchial cyst [Unknown]

NARRATIVE: CASE EVENT DATE: 20240101
